FAERS Safety Report 20392922 (Version 2)
Quarter: 2022Q1

REPORT INFORMATION
  Report Type: Spontaneous
  Country: US (occurrence: US)
  Receive Date: 20220128
  Receipt Date: 20220201
  Transmission Date: 20220423
  Serious: No
  Sender: FDA-Public Use
  Company Number: US-SANOFI-00938897

PATIENT
  Age: 60 Year
  Sex: Female

DRUGS (1)
  1. LANTUS SOLOSTAR [Suspect]
     Active Substance: INSULIN GLARGINE
     Indication: Diabetes mellitus
     Dosage: 30 IU, BID

REACTIONS (7)
  - Chronic obstructive pulmonary disease [Unknown]
  - Emphysema [Unknown]
  - Dyspnoea [Unknown]
  - Fatigue [Unknown]
  - Pain in extremity [Unknown]
  - Product use issue [Unknown]
  - Device issue [Unknown]
